FAERS Safety Report 23856595 (Version 1)
Quarter: 2024Q2

REPORT INFORMATION
  Report Type: Spontaneous
  Country: US (occurrence: US)
  Receive Date: 20240515
  Receipt Date: 20240515
  Transmission Date: 20240716
  Serious: No
  Sender: FDA-Public Use
  Company Number: US-POLAREAN-PLN-2024-000001

PATIENT

DRUGS (1)
  1. XENON [Suspect]
     Active Substance: XENON\XENON XE-133
     Indication: Magnetic resonance imaging thoracic
     Dosage: UNK
     Route: 065
     Dates: start: 20230926, end: 20230926

REACTIONS (1)
  - Urticaria [Recovered/Resolved]

NARRATIVE: CASE EVENT DATE: 20230927
